FAERS Safety Report 20380732 (Version 1)
Quarter: 2022Q1

REPORT INFORMATION
  Report Type: Other
  Country: US (occurrence: None)
  Receive Date: 20220127
  Receipt Date: 20220127
  Transmission Date: 20220423
  Serious: Yes (Other)
  Sender: FDA-Public Use
  Company Number: US-ROCHE-2941543

PATIENT
  Sex: Female
  Weight: 74.910 kg

DRUGS (7)
  1. OCREVUS [Suspect]
     Active Substance: OCRELIZUMAB
     Indication: Relapsing multiple sclerosis
     Dosage: YES
     Route: 065
     Dates: start: 20210810
  2. OCREVUS [Suspect]
     Active Substance: OCRELIZUMAB
     Route: 042
     Dates: start: 2021
  3. NEXPLANON [Concomitant]
     Active Substance: ETONOGESTREL
     Dosage: 1 TIME
  4. CHOLECALCIFEROL [Concomitant]
     Active Substance: CHOLECALCIFEROL
     Dosage: TAKE 1 TABLET BY MOUTH DAILY
  5. ETONOGESTREL [Concomitant]
     Active Substance: ETONOGESTREL
  6. IBUPROFEN [Concomitant]
     Active Substance: IBUPROFEN
  7. ONDANSETRON [Concomitant]
     Active Substance: ONDANSETRON

REACTIONS (5)
  - Amenorrhoea [Not Recovered/Not Resolved]
  - Feeling of body temperature change [Unknown]
  - Hypersensitivity [Recovered/Resolved]
  - COVID-19 [Recovered/Resolved]
  - Multiple sclerosis relapse [Recovered/Resolved]

NARRATIVE: CASE EVENT DATE: 20210101
